FAERS Safety Report 18610764 (Version 1)
Quarter: 2020Q4

REPORT INFORMATION
  Report Type: Spontaneous
  Country: NO (occurrence: NO)
  Receive Date: 20201214
  Receipt Date: 20201214
  Transmission Date: 20210114
  Serious: Yes (Disabling)
  Sender: FDA-Public Use
  Company Number: NO-PFIZER INC-2020490924

PATIENT
  Age: 88 Year
  Sex: Female

DRUGS (7)
  1. BURINEX [Concomitant]
     Active Substance: BUMETANIDE
     Indication: CARDIAC FAILURE
     Dosage: 1 MG, 1X/DAY
  2. ISOPTIN [Suspect]
     Active Substance: VERAPAMIL HYDROCHLORIDE
     Indication: ATRIAL FLUTTER
     Dosage: 120 MG, 1X/DAY
     Route: 048
     Dates: end: 20200911
  3. CARDIZEM RETARD [Suspect]
     Active Substance: DILTIAZEM HYDROCHLORIDE
     Indication: ATRIAL FLUTTER
     Dosage: 120 MG, 2X/DAY (EVERY 12 HOURS)
     Route: 048
     Dates: start: 20200911, end: 20201027
  4. BIOCARN [Concomitant]
     Indication: CARNITINE DEFICIENCY
     Dosage: 1 G, 3X/DAY (EVERY 8 HOURS)
     Dates: start: 202006
  5. ELIQUIS [Concomitant]
     Active Substance: APIXABAN
     Indication: ATRIAL FLUTTER
     Dosage: 2.5 MG, 2X/DAY (EVERY 12 HOURS)
  6. RISPERDAL [Concomitant]
     Active Substance: RISPERIDONE
     Dosage: UNK
     Dates: start: 202006, end: 20201110
  7. ATENOLOL. [Concomitant]
     Active Substance: ATENOLOL
     Indication: ATRIAL FLUTTER
     Dosage: 100 MG, 2X/DAY (EVERY 12 HOURS)
     Route: 048

REACTIONS (5)
  - Confusional state [Recovering/Resolving]
  - Feeling of despair [Recovering/Resolving]
  - Aggression [Recovering/Resolving]
  - Mood swings [Recovering/Resolving]
  - Anger [Recovering/Resolving]

NARRATIVE: CASE EVENT DATE: 202007
